FAERS Safety Report 7993261-3 (Version None)
Quarter: 2011Q4

REPORT INFORMATION
  Report Type: 
  Country: None (occurrence: None)
  Receive Date: 20111219
  Receipt Date: 20110831
  Transmission Date: 20120403
  Serious: No
  Sender: FDA-Public Use
  Company Number: US-ASTRAZENECA-2011SE52203

PATIENT
  Sex: Female

DRUGS (1)
  1. CRESTOR [Suspect]
     Dosage: 3 TIMES A DAY
     Route: 048

REACTIONS (4)
  - PAIN [None]
  - BACK PAIN [None]
  - STOMATITIS [None]
  - WEIGHT DECREASED [None]
